FAERS Safety Report 7281470 (Version 1)
Quarter: 2020Q3

REPORT INFORMATION
  Report Type: Report from Study
  Country: RU (occurrence: RU)
  Receive Date: 20100217
  Receipt Date: 20100217
  Transmission Date: 20201104
  Serious: Yes (Hospitalization)
  Sender: FDA-Public Use
  Company Number: RU-WYE-H11790409

PATIENT
  Age: 67 Year
  Sex: Male
  Weight: 66 kg

DRUGS (2)
  1. BEVACIZUMAB. [Suspect]
     Active Substance: BEVACIZUMAB
     Indication: RENAL CELL CARCINOMA
     Dosage: 670 (UNITS NOT SPECIFIED) 1 PER 2 WEEKS
     Route: 042
     Dates: start: 20090716, end: 20091006
  2. INTERFERON ALFA NOS [Suspect]
     Active Substance: INTERFERON ALFA-2A OR INTERFERON ALFA-2B
     Indication: RENAL CELL CARCINOMA
     Dosage: 9 MU 3 PER WEEK
     Route: 058
     Dates: start: 20090716

REACTIONS (2)
  - Proctitis [Recovered/Resolved]
  - Anal fistula [Recovered/Resolved]

NARRATIVE: CASE EVENT DATE: 20091010
